FAERS Safety Report 12682378 (Version 2)
Quarter: 2016Q3

REPORT INFORMATION
  Report Type: Spontaneous
  Country: BE (occurrence: BE)
  Receive Date: 20160825
  Receipt Date: 20160831
  Transmission Date: 20161109
  Serious: Yes (Hospitalization)
  Sender: FDA-Public Use
  Company Number: BE-ROCHE-1817669

PATIENT
  Sex: Female
  Weight: 40.8 kg

DRUGS (9)
  1. LEUCOVORIN CALCIUM. [Suspect]
     Active Substance: LEUCOVORIN CALCIUM
     Dosage: ON 14/JUN/2016, SHE RECEIVED OF MFOLFOX
     Route: 042
     Dates: start: 20160330, end: 20160628
  2. OXALIPLATIN. [Suspect]
     Active Substance: OXALIPLATIN
     Indication: ADENOCARCINOMA GASTRIC
     Dosage: INTERRUPTED ON 22/MAR/2016?ON 14/JUN/2016, SHE RECEIVED LAST DOSE OF MFOLFOX
     Route: 042
     Dates: start: 201501, end: 20160322
  3. BETAMETHASONE. [Concomitant]
     Active Substance: BETAMETHASONE
     Dosage: 2X4MG FOR FETAL LUNG MATURATION
     Route: 065
  4. HERCEPTIN [Suspect]
     Active Substance: TRASTUZUMAB
     Indication: ADENOCARCINOMA GASTRIC
     Route: 042
     Dates: start: 201501, end: 20160322
  5. FLUOROURACIL. [Suspect]
     Active Substance: FLUOROURACIL
     Indication: ADENOCARCINOMA GASTRIC
     Dosage: ON 14/JUN/2016, SHE RECEIVED LAST DOSE OF MFOLFOX?INTERRUPTED ON 22/MAR/2016
     Route: 042
     Dates: start: 201501, end: 20160322
  6. OXALIPLATIN. [Suspect]
     Active Substance: OXALIPLATIN
     Dosage: ON 14/JUN/2016, SHE RECEIVED MFOLFOX
     Route: 042
     Dates: start: 20160330, end: 20160628
  7. LEUCOVORIN CALCIUM. [Suspect]
     Active Substance: LEUCOVORIN CALCIUM
     Indication: ADENOCARCINOMA GASTRIC
     Route: 042
     Dates: start: 201501, end: 20160322
  8. FLUOROURACIL. [Suspect]
     Active Substance: FLUOROURACIL
     Dosage: ON 14/JUN/2016, SHE RECEIVED MFOLFOX
     Route: 042
     Dates: start: 20160330, end: 20160628
  9. ALOXI [Concomitant]
     Active Substance: PALONOSETRON HYDROCHLORIDE

REACTIONS (3)
  - Premature labour [Recovered/Resolved]
  - Maternal exposure during pregnancy [Unknown]
  - Deep vein thrombosis [Recovered/Resolved]
